FAERS Safety Report 4561540-8 (Version None)
Quarter: 2005Q1

REPORT INFORMATION
  Report Type: 
  Country: None (occurrence: None)
  Receive Date: 20050121
  Receipt Date: 20041217
  Transmission Date: 20050727
  Serious: Yes (Hospitalization, Other)
  Sender: FDA-Public Use
  Company Number: USA041286531

PATIENT
  Sex: Male

DRUGS (1)
  1. ZYPREXA [Suspect]

REACTIONS (4)
  - ACCIDENTAL EXPOSURE [None]
  - HYPOTENSION [None]
  - LOSS OF CONSCIOUSNESS [None]
  - TACHYCARDIA [None]
